FAERS Safety Report 4467737-X (Version None)
Quarter: 2004Q4

REPORT INFORMATION
  Report Type: 
  Country: None (occurrence: None)
  Receive Date: 20041001
  Receipt Date: 20040915
  Transmission Date: 20050328
  Serious: Yes (Life-Threatening)
  Sender: FDA-Public Use
  Company Number: 10061949-NA04-4

PATIENT
  Age: 7 Year
  Sex: Male
  Weight: 23.4 kg

DRUGS (8)
  1. TRAVASOL 10% [Suspect]
     Indication: GASTROSCHISIS
     Dosage: 30 GM, OVER 13 HOURS, IV
     Route: 042
     Dates: start: 19990222
  2. TRAVASOL 10% [Suspect]
     Indication: SHORT-BOWEL SYNDROME
     Dosage: 30 GM, OVER 13 HOURS, IV
     Route: 042
     Dates: start: 19990222
  3. INTRALIPID 10% [Suspect]
     Indication: GASTROSCHISIS
     Dosage: 150ML TPN Q 6 DAYS A WK, IV
     Route: 042
     Dates: start: 19990222, end: 20040915
  4. INTRALIPID 10% [Suspect]
     Indication: SHORT-BOWEL SYNDROME
     Dosage: 150ML TPN Q 6 DAYS A WK, IV
     Route: 042
     Dates: start: 19990222, end: 20040915
  5. 9% DEXTROSE [Concomitant]
  6. LACTATED RINGER'S [Concomitant]
  7. MULTI-VITAMIN [Concomitant]
  8. ZANTAC [Concomitant]

REACTIONS (3)
  - BILIRUBIN CONJUGATED INCREASED [None]
  - HYPERBILIRUBINAEMIA [None]
  - LIVER FUNCTION TEST ABNORMAL [None]
